FAERS Safety Report 19380556 (Version 1)
Quarter: 2021Q2

REPORT INFORMATION
  Report Type: Spontaneous
  Country: DE (occurrence: DE)
  Receive Date: 20210607
  Receipt Date: 20210607
  Transmission Date: 20210717
  Serious: Yes (Hospitalization)
  Sender: FDA-Public Use
  Company Number: DE-NOVOPROD-817224

PATIENT
  Age: 35 Year
  Sex: Female

DRUGS (2)
  1. ACTRAPID [Suspect]
     Active Substance: INSULIN HUMAN
     Indication: PRODUCT USED FOR UNKNOWN INDICATION
     Dosage: ACCORDING TO SCHEME
     Route: 058
  2. LANTUS [Interacting]
     Active Substance: INSULIN GLARGINE
     Indication: PRODUCT USED FOR UNKNOWN INDICATION
     Dosage: 12 IE, 0?0?0?1
     Route: 058

REACTIONS (4)
  - Hypoglycaemia [Unknown]
  - Diabetic coma [Unknown]
  - Labelled drug-drug interaction medication error [Unknown]
  - Loss of consciousness [Unknown]
